FAERS Safety Report 6785930-8 (Version None)
Quarter: 2010Q2

REPORT INFORMATION
  Report Type: 
  Country: None (occurrence: None)
  Receive Date: 20100623
  Receipt Date: 20100615
  Transmission Date: 20101027
  Serious: Yes (Hospitalization, Other)
  Sender: FDA-Public Use
  Company Number: US-ELI_LILLY_AND_COMPANY-US200906006005

PATIENT
  Sex: Male
  Weight: 142.86 kg

DRUGS (12)
  1. BYETTA [Suspect]
     Dosage: 5 U, 2/D
     Dates: start: 20060522, end: 20080325
  2. BYETTA [Suspect]
     Dosage: 10 U, 2/D
     Route: 058
     Dates: start: 20080326, end: 20080901
  3. AVANDIA [Concomitant]
     Indication: DIABETES MELLITUS
     Dosage: 8 MG, DAILY (1/D)
     Dates: start: 20080521
  4. AVANDIA [Concomitant]
     Dosage: 4 MG, UNK
  5. ATENOLOL [Concomitant]
     Indication: BLOOD PRESSURE INCREASED
     Dosage: 50 MG, DAILY (1/D)
     Route: 048
     Dates: start: 20080521
  6. LISINOPRIL [Concomitant]
     Indication: BLOOD PRESSURE INCREASED
     Dosage: 5 MG, DAILY (1/D)
     Route: 048
     Dates: start: 20080521
  7. PREVACID [Concomitant]
     Indication: GASTROOESOPHAGEAL REFLUX DISEASE
     Dosage: 30 MG, DAILY (1/D)
     Route: 048
     Dates: start: 20080428
  8. PREVACID [Concomitant]
     Dosage: 30 MG, 2/D
     Dates: start: 20080625
  9. CRESTOR [Concomitant]
     Indication: BLOOD CHOLESTEROL INCREASED
     Dosage: 10 MG, DAILY (1/D)
     Dates: start: 20080627
  10. PIOGLITAZONE HCL [Concomitant]
     Indication: DIABETES MELLITUS
     Dosage: 30 MG, UNK
     Dates: end: 20090401
  11. GLIMEPIRIDE [Concomitant]
     Dosage: 4 MG, UNK
  12. INDOMETHACIN [Concomitant]
     Indication: GOUT

REACTIONS (8)
  - BILIARY DYSKINESIA [None]
  - BLOOD AMYLASE INCREASED [None]
  - LIPASE INCREASED [None]
  - NEPHROLITHIASIS [None]
  - PANCREATITIS ACUTE [None]
  - RENAL CYST [None]
  - RENAL FAILURE CHRONIC [None]
  - WEIGHT DECREASED [None]
